FAERS Safety Report 16419623 (Version 2)
Quarter: 2019Q2

REPORT INFORMATION
  Report Type: Report from Study
  Country: BR (occurrence: BR)
  Receive Date: 20190612
  Receipt Date: 20190619
  Transmission Date: 20190711
  Serious: Yes (Hospitalization, Other)
  Sender: FDA-Public Use
  Company Number: BR-UCBSA-2017028125

PATIENT
  Age: 42 Year
  Sex: Female
  Weight: 48 kg

DRUGS (2)
  1. CERTOLIZUMAB PEGOL [Suspect]
     Active Substance: CERTOLIZUMAB PEGOL
     Indication: CROHN^S DISEASE
     Dosage: 400 MG, EV 4 WEEKS
     Route: 058
     Dates: end: 20190601
  2. AZATHIOPRINE. [Concomitant]
     Active Substance: AZATHIOPRINE
     Indication: CROHN^S DISEASE
     Dosage: 50 MG, 3X/DAY (TID)
     Dates: start: 2013

REACTIONS (2)
  - Oral pain [Recovered/Resolved]
  - Anal fistula [Recovering/Resolving]

NARRATIVE: CASE EVENT DATE: 20170701
